FAERS Safety Report 4658120-2 (Version None)
Quarter: 2005Q2

REPORT INFORMATION
  Report Type: 
  Country: None (occurrence: None)
  Receive Date: 20050509
  Receipt Date: 20050418
  Transmission Date: 20051028
  Serious: Yes (Other)
  Sender: FDA-Public Use
  Company Number: USA050392883

PATIENT
  Age: 6 Year
  Sex: Male
  Weight: 24 kg

DRUGS (1)
  1. STRATTERA [Suspect]
     Indication: ATTENTION DEFICIT/HYPERACTIVITY DISORDER
     Dosage: 25MG/ 1 DAY
     Dates: start: 20041101, end: 20041201

REACTIONS (4)
  - AMNESIA [None]
  - LOSS OF CONSCIOUSNESS [None]
  - PETIT MAL EPILEPSY [None]
  - SLEEP DISORDER [None]
